APPROVED DRUG PRODUCT: MARQIBO KIT
Active Ingredient: VINCRISTINE SULFATE
Strength: 5MG/5ML (1MG/ML)
Dosage Form/Route: INJECTABLE, LIPOSOMAL;INTRAVENOUS
Application: N202497 | Product #001
Applicant: ACROTECH BIOPHARMA LLC
Approved: Aug 9, 2012 | RLD: Yes | RS: No | Type: DISCN